FAERS Safety Report 6791202-8 (Version None)
Quarter: 2010Q2

REPORT INFORMATION
  Report Type: 
  Country: None (occurrence: None)
  Receive Date: 20100624
  Receipt Date: 20090617
  Transmission Date: 20101027
  Serious: No
  Sender: FDA-Public Use
  Company Number: US-BAUSCH-2009BL002150

PATIENT
  Age: 79 Year
  Sex: Female

DRUGS (3)
  1. BRIMONIDINE TARTRATE [Suspect]
     Indication: GLAUCOMA
     Route: 047
     Dates: start: 20090201, end: 20090430
  2. INSULIN [Concomitant]
  3. NIFEDIPIN ^VERLA^ [Concomitant]

REACTIONS (8)
  - ERYTHEMA OF EYELID [None]
  - EYE IRRITATION [None]
  - EYELID MARGIN CRUSTING [None]
  - EYELID OEDEMA [None]
  - FOREIGN BODY SENSATION IN EYES [None]
  - OCULAR HYPERAEMIA [None]
  - SCAB [None]
  - VISION BLURRED [None]
